FAERS Safety Report 7396963-5 (Version None)
Quarter: 2011Q2

REPORT INFORMATION
  Report Type: 
  Country: None (occurrence: None)
  Receive Date: 20110406
  Receipt Date: 20110328
  Transmission Date: 20111010
  Serious: Yes (Hospitalization)
  Sender: FDA-Public Use
  Company Number: FR-ASTRAZENECA-2011SE18405

PATIENT
  Age: 27958 Day
  Sex: Female

DRUGS (9)
  1. BACTRIM [Suspect]
     Route: 048
     Dates: start: 20101220, end: 20110124
  2. NEXIUM [Suspect]
     Route: 048
     Dates: start: 20101220, end: 20110124
  3. ALLOPURINOL [Suspect]
     Route: 048
     Dates: start: 20101220, end: 20110124
  4. LASIX [Concomitant]
  5. ZELITREX [Suspect]
     Route: 048
     Dates: start: 20101220, end: 20110124
  6. CORTANCYL [Concomitant]
     Route: 048
     Dates: start: 20101220, end: 20101224
  7. CORDARONE [Concomitant]
  8. CHLORAMINOPHENE [Concomitant]
     Dates: start: 20101220, end: 20110125
  9. RAMIPRIL [Concomitant]

REACTIONS (1)
  - DRUG RASH WITH EOSINOPHILIA AND SYSTEMIC SYMPTOMS [None]
